FAERS Safety Report 13992545 (Version 1)
Quarter: 2017Q3

REPORT INFORMATION
  Report Type: Spontaneous
  Country: US (occurrence: US)
  Receive Date: 20170920
  Receipt Date: 20170920
  Transmission Date: 20171128
  Serious: No
  Sender: FDA-Public Use
  Company Number: US-RECKITT BENCKISER HEALTHCARE INT LIMITED-RB-91340-2016

PATIENT
  Age: 31 Year
  Sex: Female

DRUGS (1)
  1. MUCINEX MAXIMUM STRENGTH [Suspect]
     Active Substance: GUAIFENESIN
     Indication: SINUS CONGESTION
     Dosage: UNK
     Route: 065

REACTIONS (2)
  - No adverse event [Recovered/Resolved]
  - Product use in unapproved indication [Recovered/Resolved]
